FAERS Safety Report 22006711 (Version 1)
Quarter: 2023Q1

REPORT INFORMATION
  Report Type: Other
  Country: None (occurrence: NO)
  Receive Date: 20230217
  Receipt Date: 20230217
  Transmission Date: 20230417
  Serious: Yes (Hospitalization, Other)
  Sender: FDA-Public Use
  Company Number: NO-Spectra Medical Devices, LLC-2138088

PATIENT
  Sex: Female

DRUGS (3)
  1. SODIUM CHLORIDE [Suspect]
     Active Substance: SODIUM CHLORIDE
     Indication: Abdominal cavity drainage
     Route: 065
  2. ALBENDAZOLE [Concomitant]
     Active Substance: ALBENDAZOLE
     Route: 065
  3. PRAZIQUANTEL [Concomitant]
     Active Substance: PRAZIQUANTEL
     Route: 065

REACTIONS (1)
  - Hypernatraemia [Recovered/Resolved]
